FAERS Safety Report 8021929-1 (Version None)
Quarter: 2011Q4

REPORT INFORMATION
  Report Type: 
  Country: None (occurrence: None)
  Receive Date: 20111229
  Receipt Date: 20111221
  Transmission Date: 20120403
  Serious: Yes (Life-Threatening, Hospitalization)
  Sender: FDA-Public Use
  Company Number: NGX_00594_2011

PATIENT
  Sex: Male

DRUGS (5)
  1. QUTENZA [Suspect]
     Indication: POLYNEUROPATHY
     Dosage: (2 DF, [PATCH, ON THE FEET] TOPICAL)
     Route: 061
     Dates: start: 20110801, end: 20110801
  2. QUTENZA [Suspect]
     Indication: PAIN
     Dosage: (2 DF, [PATCH, ON THE FEET] TOPICAL)
     Route: 061
     Dates: start: 20110801, end: 20110801
  3. KALETRA [Concomitant]
  4. LYRICA [Concomitant]
  5. TRUVADA [Concomitant]

REACTIONS (2)
  - TREATMENT NONCOMPLIANCE [None]
  - GUILLAIN-BARRE SYNDROME [None]
